FAERS Safety Report 14153791 (Version 2)
Quarter: 2018Q1

REPORT INFORMATION
  Report Type: Spontaneous
  Country: US (occurrence: US)
  Receive Date: 20171102
  Receipt Date: 20180201
  Transmission Date: 20180508
  Serious: No
  Sender: FDA-Public Use
  Company Number: US-SA-2017SA195352

PATIENT
  Age: 61 Year
  Sex: Male
  Weight: 109.32 kg

DRUGS (6)
  1. ROSUVASTATIN. [Concomitant]
     Active Substance: ROSUVASTATIN
     Indication: HIGH DENSITY LIPOPROTEIN INCREASED
     Route: 065
     Dates: start: 2008
  2. LISINOPRIL. [Concomitant]
     Active Substance: LISINOPRIL
     Indication: BLOOD PRESSURE MEASUREMENT
     Route: 065
     Dates: start: 2012
  3. PRALUENT [Suspect]
     Active Substance: ALIROCUMAB
     Indication: LOW DENSITY LIPOPROTEIN INCREASED
     Dosage: DOSE:75 MILLIGRAM(S)/MILLILITRE
     Route: 058
     Dates: start: 2017
  4. ALIROCUMAB PREFILLED PEN [Suspect]
     Active Substance: ALIROCUMAB
     Indication: LOW DENSITY LIPOPROTEIN INCREASED
     Dates: start: 2017
  5. ZETIA [Concomitant]
     Active Substance: EZETIMIBE
     Indication: HIGH DENSITY LIPOPROTEIN INCREASED
     Route: 065
     Dates: start: 2008
  6. ASPIRIN. [Concomitant]
     Active Substance: ASPIRIN
     Indication: BLOOD PRESSURE MEASUREMENT
     Route: 065
     Dates: start: 2017

REACTIONS (4)
  - Injury associated with device [Unknown]
  - Skin haemorrhage [Unknown]
  - Laceration [Unknown]
  - Device use issue [Unknown]

NARRATIVE: CASE EVENT DATE: 2017
